FAERS Safety Report 5578981-2 (Version None)
Quarter: 2007Q4

REPORT INFORMATION
  Report Type: 
  Country: None (occurrence: None)
  Receive Date: 20071228
  Receipt Date: 20071219
  Transmission Date: 20080405
  Serious: Yes (Hospitalization)
  Sender: FDA-Public Use
  Company Number: 163-21880-07100767

PATIENT
  Age: 82 Year
  Sex: Male

DRUGS (2)
  1. REVLIMID [Suspect]
     Indication: MULTIPLE MYELOMA
     Dosage: 15 MG, QD, ORAL; 10-25 MG, DAILY, ORAL
     Route: 048
     Dates: start: 20070914
  2. REVLIMID [Suspect]
     Indication: MULTIPLE MYELOMA
     Dosage: 15 MG, QD, ORAL; 10-25 MG, DAILY, ORAL
     Route: 048
     Dates: start: 20071116

REACTIONS (3)
  - BLOOD GLUCOSE DECREASED [None]
  - DIABETES MELLITUS [None]
  - ORAL INTAKE REDUCED [None]
